FAERS Safety Report 21799645 (Version 1)
Quarter: 2022Q4

REPORT INFORMATION
  Report Type: Spontaneous
  Country: US (occurrence: US)
  Receive Date: 20221230
  Receipt Date: 20221230
  Transmission Date: 20230112
  Serious: No
  Sender: FDA-Public Use
  Company Number: US-GSK-US2022190543

PATIENT
  Age: 64 Year
  Sex: Male

DRUGS (11)
  1. TRELEGY ELLIPTA [Suspect]
     Active Substance: FLUTICASONE FUROATE\UMECLIDINIUM BROMIDE\VILANTEROL TRIFENATATE
     Indication: Chronic obstructive pulmonary disease
     Dosage: UNK, 100MCG/62.6/25MCG INHALER ONCE IN THE AM
     Dates: start: 20221203, end: 20221217
  2. LIPITOR [Concomitant]
     Active Substance: ATORVASTATIN CALCIUM
     Indication: Blood cholesterol
     Dosage: 40 MG
  3. SINEMET [Concomitant]
     Active Substance: CARBIDOPA\LEVODOPA
     Indication: Parkinson^s disease
     Dosage: 1 DF, TID (25-100 1 PILL)
  4. GABAPENTIN [Concomitant]
     Active Substance: GABAPENTIN
     Indication: Spinal disorder
     Dosage: 800 MG, TID
  5. TRAZODONE [Concomitant]
     Active Substance: TRAZODONE HYDROCHLORIDE
     Indication: Depression
     Dosage: 2 DF (150MG 2 PILLS PM)
  6. SEROQUEL [Concomitant]
     Active Substance: QUETIAPINE FUMARATE
     Indication: Sleep apnoea syndrome
     Dosage: 100 MG (1 TABLET PM)
  7. BACLOFEN [Concomitant]
     Active Substance: BACLOFEN
     Indication: Spinal pain
     Dosage: 30 MG, TID
  8. CELEBREX [Concomitant]
     Active Substance: CELECOXIB
     Indication: Pain
     Dosage: 200 MG, BID
  9. CYMBALTA [Concomitant]
     Active Substance: DULOXETINE HYDROCHLORIDE
     Indication: Depression
     Dosage: 50 MG, BID
  10. MICROZIDE [Concomitant]
     Active Substance: HYDROCHLOROTHIAZIDE
     Indication: Hypertension
     Dosage: 12.5 1 DAILY WATER PILL
  11. XANAX [Concomitant]
     Active Substance: ALPRAZOLAM
     Indication: Anxiety
     Dosage: 1 MG (ONCE A DAY)

REACTIONS (3)
  - Dyspnoea [Recovering/Resolving]
  - Secretion discharge [Recovering/Resolving]
  - Throat irritation [Recovering/Resolving]

NARRATIVE: CASE EVENT DATE: 20221201
